FAERS Safety Report 5878703-1 (Version None)
Quarter: 2008Q3

REPORT INFORMATION
  Report Type: 
  Country: None (occurrence: None)
  Receive Date: 20080910
  Receipt Date: 20080826
  Transmission Date: 20090109
  Serious: Yes (Other)
  Sender: FDA-Public Use
  Company Number: 2008S1012301

PATIENT
  Age: 51 Year
  Sex: Female
  Weight: 53.5244 kg

DRUGS (7)
  1. BYSTOLIC [Suspect]
     Indication: SYSTOLIC HYPERTENSION
     Dosage: 10 MG; DAILY; ORAL
     Route: 048
     Dates: start: 20080506, end: 20080531
  2. LEXAPRO (CON.) [Concomitant]
  3. CALTRATE + D (CON.) [Concomitant]
  4. FISH OIL (CON.) [Concomitant]
  5. VITAMIN B 6 (CON.) [Concomitant]
  6. HALFLYTELY (CON.) [Concomitant]
  7. METOPROLOL (CON.) [Concomitant]

REACTIONS (11)
  - ARTHRALGIA [None]
  - ASTHENIA [None]
  - DRUG INEFFECTIVE [None]
  - DYSSTASIA [None]
  - GAIT DISTURBANCE [None]
  - MUSCULAR WEAKNESS [None]
  - MUSCULOSKELETAL STIFFNESS [None]
  - MYALGIA [None]
  - NAUSEA [None]
  - OEDEMA PERIPHERAL [None]
  - PAIN IN EXTREMITY [None]
